FAERS Safety Report 9735434 (Version 2)
Quarter: 2015Q3

REPORT INFORMATION
  Report Type: Spontaneous
  Country: US (occurrence: US)
  Receive Date: 20131206
  Receipt Date: 20150804
  Transmission Date: 20151125
  Serious: No
  Sender: FDA-Public Use
  Company Number: US-GILEAD-2009-0022788

PATIENT
  Age: 65 Year
  Sex: Female

DRUGS (15)
  1. GLUCOSAMINE [Concomitant]
     Active Substance: GLUCOSAMINE
  2. ACAI [Concomitant]
  3. PAXIL [Concomitant]
     Active Substance: PAROXETINE HYDROCHLORIDE
  4. ASACOL [Concomitant]
     Active Substance: MESALAMINE
  5. ACIDOPHILUS [Concomitant]
     Active Substance: LACTOBACILLUS ACIDOPHILUS
  6. METHOTREXATE [Concomitant]
     Active Substance: METHOTREXATE
  7. CALCIUM [Concomitant]
     Active Substance: CALCIUM
  8. MONI [Concomitant]
  9. HYDROCORTISONE. [Concomitant]
     Active Substance: HYDROCORTISONE
  10. FOLIC ACID. [Concomitant]
     Active Substance: FOLIC ACID
  11. ASA [Concomitant]
     Active Substance: ASPIRIN
  12. CHONDROITIN [Concomitant]
     Active Substance: CHONDROITIN
  13. LETAIRIS [Suspect]
     Active Substance: AMBRISENTAN
     Indication: PULMONARY ARTERIAL HYPERTENSION
     Route: 048
     Dates: start: 20080820
  14. NIFEDICAL XL [Concomitant]
     Active Substance: NIFEDIPINE
  15. LIPITOR [Concomitant]
     Active Substance: ATORVASTATIN CALCIUM

REACTIONS (2)
  - Peripheral swelling [Not Recovered/Not Resolved]
  - Upper respiratory tract congestion [Not Recovered/Not Resolved]

NARRATIVE: CASE EVENT DATE: 20080820
